FAERS Safety Report 10040178 (Version 2)
Quarter: 2014Q2

REPORT INFORMATION
  Report Type: Spontaneous
  Country: IN (occurrence: IN)
  Receive Date: 20140326
  Receipt Date: 20140402
  Transmission Date: 20141212
  Serious: Yes (Death)
  Sender: FDA-Public Use
  Company Number: IN-ROCHE-1371454

PATIENT
  Age: 45 Year
  Sex: Male
  Weight: 65 kg

DRUGS (2)
  1. METALYSE [Suspect]
     Indication: MYOCARDIAL INFARCTION
     Route: 065
  2. LIDOCAINE [Concomitant]

REACTIONS (1)
  - Ventricular tachycardia [Fatal]
